FAERS Safety Report 8009981-0 (Version None)
Quarter: 2011Q4

REPORT INFORMATION
  Report Type: 
  Country: None (occurrence: None)
  Receive Date: 20111221
  Receipt Date: 20111214
  Transmission Date: 20120403
  Serious: Yes (Hospitalization, Other)
  Sender: FDA-Public Use
  Company Number: CL-362-2011

PATIENT
  Age: 61 Year
  Sex: Male
  Weight: 52 kg

DRUGS (3)
  1. AMIODARONE HCL [Suspect]
     Indication: VENTRICULAR TACHYCARDIA
     Dosage: 200 MG OD, ORAL ROUTE
     Route: 048
  2. ENALAPRIL MALEATE [Concomitant]
  3. CARVEDILOL [Concomitant]

REACTIONS (2)
  - THYROID CANCER [None]
  - HYPERTHYROIDISM [None]
